FAERS Safety Report 4461298-7 (Version None)
Quarter: 2004Q3

REPORT INFORMATION
  Report Type: 
  Country: None (occurrence: None)
  Receive Date: 20040928
  Receipt Date: 20040816
  Transmission Date: 20050211
  Serious: Yes (Other)
  Sender: FDA-Public Use
  Company Number: JP-GLAXOSMITHKLINE-B0343435A

PATIENT
  Age: 35 Year
  Sex: Female
  Weight: 50 kg

DRUGS (3)
  1. ZANTAC [Suspect]
     Indication: GASTRITIS
     Dosage: 100MG PER DAY
     Route: 042
     Dates: start: 20040805, end: 20040805
  2. RINDERON [Concomitant]
     Indication: ERYTHEMA NODOSUM
     Dosage: 2MG PER DAY
     Route: 042
     Dates: start: 20040805, end: 20040805
  3. ISOTONIC SODIUM CHLORIDE [Concomitant]
     Dosage: 100ML PER DAY
     Route: 042
     Dates: start: 20040805, end: 20040817

REACTIONS (6)
  - BLOOD PRESSURE DECREASED [None]
  - CONVULSION [None]
  - HYPOTENSION [None]
  - INFUSION RELATED REACTION [None]
  - LYMPHOCYTE STIMULATION TEST NEGATIVE [None]
  - SHOCK [None]
